FAERS Safety Report 9668706 (Version 2)
Quarter: 2013Q4

REPORT INFORMATION
  Report Type: Spontaneous
  Country: US (occurrence: US)
  Receive Date: 20131105
  Receipt Date: 20131205
  Transmission Date: 20140711
  Serious: Yes (Other)
  Sender: FDA-Public Use
  Company Number: US-ASTRAZENECA-2013SE79514

PATIENT
  Age: 82 Year
  Sex: Female
  Weight: 90.7 kg

DRUGS (23)
  1. SYMBICORT PMDI [Suspect]
     Indication: ASTHMA
     Route: 055
     Dates: end: 201302
  2. SYMBICORT PMDI [Suspect]
     Indication: CHRONIC OBSTRUCTIVE PULMONARY DISEASE
     Route: 055
     Dates: end: 201302
  3. SYMBICORT PMDI [Suspect]
     Indication: ASTHMA
     Dosage: 80/4.5MCG 2 PUFFS 2 TIMES PER DAY
     Route: 055
     Dates: start: 201302
  4. SYMBICORT PMDI [Suspect]
     Indication: CHRONIC OBSTRUCTIVE PULMONARY DISEASE
     Dosage: 80/4.5MCG 2 PUFFS 2 TIMES PER DAY
     Route: 055
     Dates: start: 201302
  5. QUETIAPINE [Suspect]
     Indication: SLEEP DISORDER
     Route: 048
  6. PROVENTIL [Concomitant]
     Indication: ASTHMA
  7. ACIPHEX [Concomitant]
     Indication: GASTRIC DISORDER
  8. AMIODARONE [Concomitant]
     Dates: start: 201302
  9. BUSPIRONE [Concomitant]
     Dates: start: 201302
  10. EFFEXOR [Concomitant]
     Indication: DEPRESSION
  11. EFFEXOR [Concomitant]
     Indication: DEPRESSION
  12. FUROSEMIDE [Concomitant]
     Indication: CARDIAC FAILURE CONGESTIVE
     Dates: start: 201302
  13. GLYBURIDE [Concomitant]
     Indication: DIABETES MELLITUS
     Dates: start: 201302
  14. POTASSIUM CHLORIDE [Concomitant]
     Indication: BLOOD POTASSIUM DECREASED
     Dates: start: 201302, end: 201310
  15. POTASSIUM CHLORIDE [Concomitant]
     Indication: BLOOD POTASSIUM DECREASED
     Dates: start: 201310
  16. THYROXINE [Concomitant]
     Indication: THYROID DISORDER
     Dosage: 150 QAM
     Dates: start: 201304
  17. ACUBITE NASAL [Concomitant]
     Dosage: 1 DAILY
     Route: 048
  18. VITAMIN B12 [Concomitant]
     Indication: VITAMIN B12 DECREASED
     Dosage: 2000 DAILY
     Dates: start: 201304
  19. VITAMIN D [Concomitant]
     Indication: VITAMIN D DECREASED
     Dosage: 2000 DAILY
     Dates: start: 201304
  20. NYSTATIN [Concomitant]
     Indication: FUNGAL INFECTION
     Dosage: 100,000 OID
     Route: 048
     Dates: start: 201310
  21. XARELTO [Concomitant]
     Indication: CARDIAC DISORDER
     Dates: start: 201302
  22. ATORVASTATIN [Concomitant]
  23. LORAZEPAM [Concomitant]
     Indication: ANXIETY

REACTIONS (11)
  - Cardiac failure congestive [Unknown]
  - Diabetes mellitus [Unknown]
  - Chronic obstructive pulmonary disease [Unknown]
  - Weight loss poor [Unknown]
  - Anxiety [Unknown]
  - Anger [Unknown]
  - Blood potassium decreased [Recovered/Resolved]
  - Fungal infection [Unknown]
  - Off label use [Unknown]
  - Drug dose omission [Unknown]
  - Intentional drug misuse [Unknown]
